FAERS Safety Report 11772514 (Version 1)
Quarter: 2015Q4

REPORT INFORMATION
  Report Type: Spontaneous
  Country: AT (occurrence: AT)
  Receive Date: 20151124
  Receipt Date: 20151124
  Transmission Date: 20160304
  Serious: Yes (Life-Threatening, Hospitalization)
  Sender: FDA-Public Use
  Company Number: AT-ELI_LILLY_AND_COMPANY-AT201511006926

PATIENT
  Age: 60 Year
  Sex: Male

DRUGS (24)
  1. THERMORHEUMON [Concomitant]
     Dosage: 1 DF, BID
     Route: 065
     Dates: start: 20151022
  2. NOAX UNO [Concomitant]
     Dosage: 1 DF, BID
     Route: 065
     Dates: start: 20151029
  3. SPASMOLYT [Concomitant]
     Dosage: 1 DF, BID
     Route: 065
     Dates: start: 20151029
  4. EFECTIN [Suspect]
     Active Substance: VENLAFAXINE HYDROCHLORIDE
     Indication: PRODUCT USED FOR UNKNOWN INDICATION
     Dosage: 150 MG, QD
     Route: 065
     Dates: start: 20150127
  5. TEMESTA                            /00273201/ [Suspect]
     Active Substance: LORAZEPAM
     Indication: PRODUCT USED FOR UNKNOWN INDICATION
     Dosage: 1 MG, BID
     Route: 065
     Dates: start: 20151010
  6. MOVICOL [Concomitant]
     Active Substance: POLYETHYLENE GLYCOL 3350\POTASSIUM CHLORIDE\SODIUM BICARBONATE\SODIUM CHLORIDE
     Dosage: 1 DF, QD
     Route: 065
     Dates: start: 20140822
  7. HYDROCHLOROTHIAZIDE W/LISINOPRIL [Concomitant]
     Active Substance: HYDROCHLOROTHIAZIDE\LISINOPRIL
     Dosage: 0.5 DF, QD
     Route: 065
     Dates: start: 20141205
  8. MEXALEN [Concomitant]
     Active Substance: ACETAMINOPHEN
     Indication: BACK PAIN
     Dosage: UNK, UNKNOWN
     Route: 065
     Dates: start: 20151028
  9. PANTOPRAZOL GENERICON [Concomitant]
     Dosage: 20 MG, QD
     Route: 065
     Dates: start: 20141205
  10. ZYPREXA [Suspect]
     Active Substance: OLANZAPINE
     Indication: TENSION
     Dosage: 5 MG, QD
     Route: 065
     Dates: start: 20150403
  11. SIRDALUD [Concomitant]
     Active Substance: TIZANIDINE
     Indication: SPINAL PAIN
     Dosage: 2 MG, QD
     Route: 065
     Dates: start: 20150403
  12. TAMSULOSIN +PHARMA [Concomitant]
     Dosage: 0.4 MG, QD
     Route: 065
     Dates: start: 20150429
  13. THROMBO ASS [Concomitant]
     Active Substance: ASPIRIN
     Dosage: 100 MG, QD
     Route: 065
     Dates: start: 20140822
  14. CANDIO HERMAL [Concomitant]
     Dosage: UNK, UNKNOWN
     Route: 065
     Dates: start: 20141002
  15. AMLODIPINE [Concomitant]
     Active Substance: AMLODIPINE BESYLATE
     Dosage: 5 MG, QD
     Route: 065
     Dates: start: 20141211
  16. ZYPREXA [Suspect]
     Active Substance: OLANZAPINE
     Indication: RESTLESSNESS
  17. RISPERDAL [Suspect]
     Active Substance: RISPERIDONE
     Indication: PRODUCT USED FOR UNKNOWN INDICATION
     Dosage: 2 MG, BID
     Route: 065
     Dates: start: 20150127
  18. DAKTARIN                           /00310801/ [Concomitant]
     Active Substance: MICONAZOLE NITRATE
     Dosage: UNK, UNKNOWN
     Route: 065
     Dates: start: 20141002
  19. NITROLINGUAL [Concomitant]
     Active Substance: NITROGLYCERIN
     Dosage: UNK, UNKNOWN
     Route: 065
     Dates: start: 20141121
  20. SORTIS [Concomitant]
     Active Substance: ATORVASTATIN
     Dosage: 40 MG, QD
     Route: 065
     Dates: start: 20141205
  21. NOVALGIN [Concomitant]
     Active Substance: METAMIZOLE SODIUM
     Indication: PAIN
     Dosage: UNK, UNKNOWN
     Route: 065
     Dates: start: 20141204
  22. SAROTEN [Suspect]
     Active Substance: AMITRIPTYLINE
     Indication: PRODUCT USED FOR UNKNOWN INDICATION
     Dosage: 25 MG, BID
     Route: 065
     Dates: start: 20141204
  23. SEROQUEL [Suspect]
     Active Substance: QUETIAPINE FUMARATE
     Indication: PRODUCT USED FOR UNKNOWN INDICATION
     Dosage: 100 MG, BID
     Route: 065
     Dates: start: 20141211
  24. MIRTABENE [Suspect]
     Active Substance: MIRTAZAPINE
     Indication: PRODUCT USED FOR UNKNOWN INDICATION
     Dosage: 15 MG, BID
     Route: 065
     Dates: start: 20150127

REACTIONS (3)
  - Cold sweat [Not Recovered/Not Resolved]
  - Electrolyte imbalance [Not Recovered/Not Resolved]
  - Epilepsy [Not Recovered/Not Resolved]

NARRATIVE: CASE EVENT DATE: 20151029
